FAERS Safety Report 7972911-1 (Version None)
Quarter: 2011Q4

REPORT INFORMATION
  Report Type: 
  Country: None (occurrence: None)
  Receive Date: 20111213
  Receipt Date: 20110926
  Transmission Date: 20120403
  Serious: Yes (Hospitalization)
  Sender: FDA-Public Use
  Company Number: US-ROCHE-1018050

PATIENT
  Sex: Male
  Weight: 51 kg

DRUGS (10)
  1. LORAZEPAM [Concomitant]
  2. OXALIPLATIN [Suspect]
     Indication: GASTROOESOPHAGEAL CANCER
     Dates: start: 20110315, end: 20110913
  3. LOMOTIL [Concomitant]
     Route: 048
  4. LANSOPRAZOLE [Concomitant]
     Route: 048
  5. MIRTAZAPINE [Concomitant]
     Dosage: FREQUENCY:QHS
     Route: 048
  6. AVASTIN [Suspect]
     Indication: GASTROOESOPHAGEAL CANCER
     Dates: start: 20110503, end: 20110913
  7. HERCEPTIN [Suspect]
     Indication: GASTROOESOPHAGEAL CANCER
     Dates: start: 20110426, end: 20110913
  8. XELODA [Suspect]
     Indication: GASTROOESOPHAGEAL CANCER
     Dosage: FREQUENCY: BID 2 WKS ON /OFF
     Dates: start: 20110315, end: 20110919
  9. DTO [Concomitant]
     Dosage: OPIUM TINCTURE DEODORIZED
     Route: 048
  10. PROCHLORPERAZINE [Concomitant]
     Route: 048

REACTIONS (3)
  - FATIGUE [None]
  - DEHYDRATION [None]
  - DYSPNOEA [None]
